FAERS Safety Report 22139381 (Version 1)
Quarter: 2023Q1

REPORT INFORMATION
  Report Type: Spontaneous
  Country: GB (occurrence: GB)
  Receive Date: 20230327
  Receipt Date: 20230327
  Transmission Date: 20230417
  Serious: Yes (Disabling, Other)
  Sender: FDA-Public Use
  Company Number: None

PATIENT
  Age: 4 Year
  Sex: Male

DRUGS (1)
  1. MONTELUKAST SODIUM [Suspect]
     Active Substance: MONTELUKAST SODIUM
     Indication: Wheezing
     Dosage: 4MG ONCE A DAY AT NIGHT;

REACTIONS (5)
  - Aggression [Not Recovered/Not Resolved]
  - Defiant behaviour [Not Recovered/Not Resolved]
  - Mood swings [Not Recovered/Not Resolved]
  - Aggression [Not Recovered/Not Resolved]
  - Sleep disorder [Not Recovered/Not Resolved]
